FAERS Safety Report 10449450 (Version 1)
Quarter: 2014Q3

REPORT INFORMATION
  Report Type: Spontaneous
  Country: US (occurrence: None)
  Receive Date: 20140911
  Receipt Date: 20140911
  Transmission Date: 20150326
  Serious: Yes (Life-Threatening, Hospitalization, Disabling)
  Sender: FDA-Public Use
  Company Number: None

PATIENT
  Age: 29 Year
  Sex: Female
  Weight: 63.5 kg

DRUGS (2)
  1. GILDESS 1/20 [Suspect]
     Active Substance: ETHINYL ESTRADIOL\NORETHINDRONE ACETATE
     Indication: POLYCYSTIC OVARIES
     Route: 048
  2. METFORMIN [Concomitant]
     Active Substance: METFORMIN HYDROCHLORIDE

REACTIONS (8)
  - Loss of consciousness [None]
  - Cardiogenic shock [None]
  - Myocardial infarction [None]
  - Ventricular fibrillation [None]
  - Leg amputation [None]
  - Cerebrovascular accident [None]
  - Cardiac arrest [None]
  - Venous thrombosis [None]

NARRATIVE: CASE EVENT DATE: 20140819
